FAERS Safety Report 7989676-X (Version None)
Quarter: 2011Q4

REPORT INFORMATION
  Report Type: 
  Country: None (occurrence: None)
  Receive Date: 20111219
  Receipt Date: 20111216
  Transmission Date: 20120403
  Serious: Yes (Death)
  Sender: FDA-Public Use
  Company Number: US-ABBOTT-11P-163-0731584-00

PATIENT
  Sex: Male
  Weight: 106.69 kg

DRUGS (4)
  1. TRAMADOL HCL [Concomitant]
     Indication: PRODUCT USED FOR UNKNOWN INDICATION
  2. PRILOSEC [Concomitant]
     Indication: PRODUCT USED FOR UNKNOWN INDICATION
  3. HUMIRA [Suspect]
     Indication: PSORIASIS
     Dates: start: 20090101, end: 20110609
  4. ETODOLAC [Concomitant]
     Indication: PRODUCT USED FOR UNKNOWN INDICATION

REACTIONS (7)
  - SKIN FRAGILITY [None]
  - ABNORMAL BEHAVIOUR [None]
  - SKIN ATROPHY [None]
  - ALOPECIA [None]
  - MOOD ALTERED [None]
  - SKIN DISORDER [None]
  - MYOCARDIAL INFARCTION [None]
